FAERS Safety Report 10155874 (Version 1)
Quarter: 2014Q2

REPORT INFORMATION
  Report Type: Spontaneous
  Country: GB (occurrence: GB)
  Receive Date: 20140506
  Receipt Date: 20140506
  Transmission Date: 20141212
  Serious: Yes (Other)
  Sender: FDA-Public Use
  Company Number: GB-ACTAVIS-2014-08949

PATIENT
  Age: 1 Year
  Sex: Male

DRUGS (2)
  1. HYDROCORTISONE [Suspect]
     Indication: PRODUCT USED FOR UNKNOWN INDICATION
     Dosage: 1 %, UNKNOWN
     Route: 061
     Dates: start: 201404, end: 201404
  2. BETAMETHASONE VALERATE [Suspect]
     Indication: PRODUCT USED FOR UNKNOWN INDICATION
     Dosage: 0.1 %, UNKNOWN
     Route: 061
     Dates: start: 201404, end: 201404

REACTIONS (1)
  - Diabetes mellitus inadequate control [Unknown]
